FAERS Safety Report 10157748 (Version 3)
Quarter: 2014Q2

REPORT INFORMATION
  Report Type: Report from Study
  Country: CA (occurrence: CA)
  Receive Date: 20140507
  Receipt Date: 20140512
  Transmission Date: 20141212
  Serious: Yes (Death, Hospitalization, Other)
  Sender: FDA-Public Use
  Company Number: PHHY2012CA001088

PATIENT
  Age: 64 Year
  Sex: Female

DRUGS (9)
  1. AFINITOR [Suspect]
     Indication: NEUROENDOCRINE TUMOUR
     Dosage: 10 MG, QD
     Route: 048
     Dates: start: 20110811
  2. AFINITOR [Suspect]
     Dosage: 10 MG DAILY
     Route: 048
     Dates: start: 20111108, end: 201205
  3. AFINITOR [Suspect]
     Dosage: 10 MG, QOD
     Route: 048
     Dates: start: 201206
  4. AFINITOR [Suspect]
     Dosage: 10 MG, DAILY
     Route: 048
  5. SANDOSTATIN LAR [Suspect]
     Indication: NEUROENDOCRINE TUMOUR
     Dosage: 40 MG, QMO
     Route: 030
     Dates: start: 20060317, end: 20140310
  6. HUMULIN [Concomitant]
     Dosage: 13 U, QD
     Route: 058
  7. DIAMICRON [Concomitant]
     Dosage: 120 MG, QD
  8. ONGLYZA [Concomitant]
     Dosage: 2.5 MG, QD
  9. GLUCOPHAGE [Concomitant]
     Dosage: UNK UKN, UNK
     Dates: end: 20130819

REACTIONS (23)
  - Death [Fatal]
  - Malignant neoplasm progression [Unknown]
  - Metastasis [Unknown]
  - Hypersomnia [Unknown]
  - Malaise [Unknown]
  - General physical health deterioration [Unknown]
  - Vaginal lesion [Recovering/Resolving]
  - Lymphorrhoea [Unknown]
  - Pallor [Unknown]
  - Heart rate irregular [Unknown]
  - Pain in extremity [Unknown]
  - Onychoclasis [Unknown]
  - Alopecia [Unknown]
  - Rash [Unknown]
  - Stomatitis [Unknown]
  - Peripheral swelling [Unknown]
  - Pruritus [Unknown]
  - Nausea [Unknown]
  - Vomiting [Unknown]
  - Cough [Unknown]
  - Nasopharyngitis [Unknown]
  - Asthenia [Unknown]
  - Dehydration [Unknown]
